FAERS Safety Report 8849661 (Version 3)
Quarter: 2013Q1

REPORT INFORMATION
  Report Type: Spontaneous
  Country: US (occurrence: US)
  Receive Date: 20121019
  Receipt Date: 20130207
  Transmission Date: 20140127
  Serious: Yes (Hospitalization)
  Sender: FDA-Public Use
  Company Number: US-VERTEX PHARMACEUTICAL INC.-2012-022969

PATIENT
  Age: 51 Year
  Sex: Male
  Weight: 101 kg

DRUGS (9)
  1. INCIVEK [Suspect]
     Indication: HEPATITIS C
     Dosage: 750 MG, TID
     Route: 048
     Dates: start: 20111130, end: 20120219
  2. RIBAVIRIN [Suspect]
     Indication: HEPATITIS C
     Dosage: 1400 MG, QD
     Route: 048
     Dates: start: 20111130, end: 20120219
  3. PEGASYS [Suspect]
     Indication: HEPATITIS C
     Dosage: 180 ?G, QW
     Route: 058
     Dates: start: 20111130, end: 20120219
  4. VALIUM [Concomitant]
     Dosage: UNK
     Route: 048
  5. SYNTHROID [Concomitant]
     Indication: HYPOTHYROIDISM
     Dosage: 75 ?G, QD
     Route: 048
  6. METHADONE [Concomitant]
     Dosage: 10 MG, UNK
     Route: 048
  7. CEFTIN [Concomitant]
     Dosage: 500 MG, BID
     Route: 048
  8. OXYCODONE [Concomitant]
     Dosage: 30 MG, EVERY 4 HOURS
     Route: 048
  9. TRIAMCINOLONE [Concomitant]
     Dosage: UNK UNK, TID
     Route: 061

REACTIONS (19)
  - Dehydration [Unknown]
  - Anaemia macrocytic [Unknown]
  - Failure to thrive [Unknown]
  - Toxic encephalopathy [Unknown]
  - Hypernatraemia [Unknown]
  - Stevens-Johnson syndrome [Recovered/Resolved]
  - Hypokalaemia [Unknown]
  - Thrombocytopenia [Unknown]
  - Renal failure acute [Unknown]
  - Victim of abuse [Unknown]
  - Delirium [Unknown]
  - Laceration [Unknown]
  - Coagulopathy [Unknown]
  - Liver function test abnormal [Unknown]
  - Cardiac enzymes increased [Unknown]
  - Pancytopenia [Unknown]
  - Mental status changes [Unknown]
  - Lethargy [Unknown]
  - Asthenia [None]
